FAERS Safety Report 9477936 (Version 1)
Quarter: 2013Q3

REPORT INFORMATION
  Report Type: Spontaneous
  Country: US (occurrence: None)
  Receive Date: 20130826
  Receipt Date: 20130826
  Transmission Date: 20140515
  Serious: Yes (Hospitalization)
  Sender: FDA-Public Use
  Company Number: None

PATIENT
  Age: 42 Year
  Sex: Female
  Weight: 74 kg

DRUGS (2)
  1. PROPOFOL [Suspect]
     Indication: ANAESTHESIA
     Dosage: OVER 74 MINUTES
     Route: 042
     Dates: start: 20130713
  2. KETAMINE [Suspect]
     Indication: ANAESTHESIA
     Dosage: OVER 74 MINUTES
     Route: 042
     Dates: start: 20130713

REACTIONS (2)
  - Sedation [None]
  - Respiratory disorder [None]
